FAERS Safety Report 8760965 (Version 3)
Quarter: 2012Q4

REPORT INFORMATION
  Report Type: 
  Country: JP (occurrence: JP)
  Receive Date: 20120830
  Receipt Date: 20121228
  Transmission Date: 20130627
  Serious: Yes (Other)
  Sender: FDA-Public Use
  Company Number: JP-009507513-1208JPN009737

PATIENT
  Age: 68 Year
  Sex: Male
  Weight: 67 kg

DRUGS (12)
  1. PEGINTRON [Suspect]
     Indication: CHRONIC HEPATITIS C
     Dosage: 1.5 Microgram per kilogram, qw
     Route: 058
     Dates: end: 20121120
  2. REBETOL [Suspect]
     Indication: CHRONIC HEPATITIS C
     Dosage: 800 mg, qd
     Route: 048
     Dates: end: 20120629
  3. REBETOL [Suspect]
     Dosage: 400 mg, qd
     Route: 048
     Dates: start: 20120630, end: 20120704
  4. REBETOL [Suspect]
     Dosage: 200 mg, qd
     Route: 048
     Dates: start: 20120705, end: 20121120
  5. TELAVIC [Suspect]
     Indication: CHRONIC HEPATITIS C
     Dosage: 1000 mg, qd, cumulative dose: 7000 mg
     Route: 048
     Dates: start: 20120616, end: 20120808
  6. TELAVIC [Suspect]
     Dosage: 500 mg, UNK, cumulative dose: 7000 mg
     Route: 048
     Dates: start: 20120809, end: 20120906
  7. LIVALO [Concomitant]
     Indication: HYPERLIPIDAEMIA
     Dosage: 2 mg, qd
     Route: 048
  8. EPADEL [Concomitant]
     Indication: HYPERLIPIDAEMIA
     Dosage: 1800 mg, qd,formulation:POR
     Route: 048
  9. FEROTYM [Concomitant]
     Indication: IRON DEFICIENCY ANAEMIA
     Dosage: 100 mg, qd,formulation:POR
     Route: 048
  10. CLARITIN REDITABS [Concomitant]
     Indication: PROPHYLAXIS
     Dosage: 10 mg, qd, formulation : por
     Route: 048
  11. SALOBEL [Concomitant]
     Indication: HYPERURICAEMIA
     Dosage: 200 mg, qd, formulation: POR
     Route: 048
  12. BENECID [Concomitant]
     Indication: HYPERURICAEMIA
     Dosage: 500 mg, qd, formulation: POR
     Route: 048

REACTIONS (3)
  - Anaemia [Not Recovered/Not Resolved]
  - Anaemia [Not Recovered/Not Resolved]
  - Anaemia [Not Recovered/Not Resolved]
